FAERS Safety Report 12622556 (Version 1)
Quarter: 2016Q3

REPORT INFORMATION
  Report Type: Report from Study
  Country: BR (occurrence: BR)
  Receive Date: 20160804
  Receipt Date: 20160804
  Transmission Date: 20161109
  Serious: Yes (Other)
  Sender: FDA-Public Use
  Company Number: PHHY2016BR105934

PATIENT
  Sex: Female
  Weight: 70 kg

DRUGS (1)
  1. RITALIN LA [Suspect]
     Active Substance: METHYLPHENIDATE HYDROCHLORIDE
     Indication: EPILEPSY
     Dosage: 20 MG, QD
     Route: 048
     Dates: start: 201603

REACTIONS (5)
  - Limb injury [Unknown]
  - Product use issue [Unknown]
  - Gait disturbance [Unknown]
  - Swelling [Unknown]
  - Myocardial infarction [Unknown]
